FAERS Safety Report 8168987-1 (Version None)
Quarter: 2012Q1

REPORT INFORMATION
  Report Type: 
  Country: None (occurrence: None)
  Receive Date: 20120227
  Receipt Date: 20120222
  Transmission Date: 20120608
  Serious: Yes (Other)
  Sender: FDA-Public Use
  Company Number: US-AMGEN-USASP2012009770

PATIENT
  Age: 54 Year
  Sex: Male
  Weight: 107.94 kg

DRUGS (1)
  1. ENBREL [Suspect]
     Indication: RHEUMATOID ARTHRITIS
     Dosage: 50 MG, QWK
     Route: 058
     Dates: start: 20110718, end: 20120101

REACTIONS (10)
  - HEART RATE INCREASED [None]
  - INSOMNIA [None]
  - DYSPNOEA [None]
  - NASAL CONGESTION [None]
  - NAUSEA [None]
  - HYPERHIDROSIS [None]
  - RHINORRHOEA [None]
  - FATIGUE [None]
  - ARTHRALGIA [None]
  - PAIN IN EXTREMITY [None]
